FAERS Safety Report 9915343 (Version 1)
Quarter: 2014Q1

REPORT INFORMATION
  Report Type: Report from Study
  Country: US (occurrence: US)
  Receive Date: 20140221
  Receipt Date: 20140221
  Transmission Date: 20141002
  Serious: Yes (Other)
  Sender: FDA-Public Use
  Company Number: US-ROCHE-1323437

PATIENT
  Sex: Female

DRUGS (3)
  1. LUCENTIS [Suspect]
     Indication: RETINOPATHY
     Dosage: BOTH EYES
     Route: 065
  2. AVASTIN [Suspect]
     Indication: RETINOPATHY
     Dosage: TAKEN FOR YEARS
     Route: 065
  3. AVASTIN [Suspect]
     Route: 065

REACTIONS (3)
  - Eye irritation [Recovered/Resolved]
  - Dyspnoea [Recovered/Resolved]
  - Hypersensitivity [Unknown]
